FAERS Safety Report 9536635 (Version 1)
Quarter: 2013Q3

REPORT INFORMATION
  Report Type: Spontaneous
  Country: PT (occurrence: PT)
  Receive Date: 20130919
  Receipt Date: 20130919
  Transmission Date: 20140515
  Serious: Yes (Other)
  Sender: FDA-Public Use
  Company Number: PT-CELGENEUS-130-21880-13053244

PATIENT
  Age: 74 Year
  Sex: Male

DRUGS (2)
  1. REVLIMID [Suspect]
     Indication: MYELOFIBROSIS
     Route: 048
  2. REVLIMID [Suspect]
     Indication: 5Q MINUS SYNDROME

REACTIONS (1)
  - Transitional cell carcinoma urethra [Unknown]
